FAERS Safety Report 9331262 (Version 2)
Quarter: 2013Q3

REPORT INFORMATION
  Report Type: Spontaneous
  Country: JP (occurrence: JP)
  Receive Date: 20130605
  Receipt Date: 20130812
  Transmission Date: 20140515
  Serious: Yes (Other)
  Sender: FDA-Public Use
  Company Number: JP-PFIZER INC-2013164016

PATIENT
  Age: 62 Year
  Sex: 0

DRUGS (1)
  1. REVATIO [Suspect]
     Dosage: UNK
     Route: 048
     Dates: start: 201303, end: 2013

REACTIONS (1)
  - Eye disorder [Unknown]
